FAERS Safety Report 11482996 (Version 1)
Quarter: 2015Q3

REPORT INFORMATION
  Report Type: Spontaneous
  Country: CA (occurrence: CA)
  Receive Date: 20150909
  Receipt Date: 20150909
  Transmission Date: 20151125
  Serious: Yes (Other)
  Sender: FDA-Public Use
  Company Number: CA-TARO PHARMACEUTICALS USA.,INC-2015SUN01921

PATIENT

DRUGS (1)
  1. ORACORT [Suspect]
     Active Substance: TRIAMCINOLONE ACETONIDE
     Indication: MOUTH ULCERATION
     Dosage: 4 TIMES A DAY
     Route: 002
     Dates: start: 20150823, end: 20150826

REACTIONS (5)
  - Hypersensitivity [Not Recovered/Not Resolved]
  - Fluid intake reduced [None]
  - Feeding disorder [Not Recovered/Not Resolved]
  - Inappropriate schedule of drug administration [Unknown]
  - Pain [Not Recovered/Not Resolved]

NARRATIVE: CASE EVENT DATE: 201508
